FAERS Safety Report 19430325 (Version 1)
Quarter: 2021Q2

REPORT INFORMATION
  Report Type: Spontaneous
  Country: US (occurrence: US)
  Receive Date: 20210617
  Receipt Date: 20210617
  Transmission Date: 20210717
  Serious: Yes (Other)
  Sender: FDA-Public Use
  Company Number: US-TOLMAR, INC.-21US027927

PATIENT
  Age: 29 Year
  Sex: Female

DRUGS (2)
  1. KETOCONAZOLE. [Suspect]
     Active Substance: KETOCONAZOLE
     Indication: CUSHING^S SYNDROME
     Dosage: UNK UNK, TID
  2. METYRAPONE [Concomitant]
     Active Substance: METYRAPONE
     Indication: CUSHING^S SYNDROME
     Dosage: 250 MILLIGRAM, QID

REACTIONS (4)
  - Hyperadrenocorticism [Recovering/Resolving]
  - Pulmonary nocardiosis [Recovering/Resolving]
  - Pituitary tumour benign [Recovering/Resolving]
  - Drug ineffective [Unknown]
